FAERS Safety Report 21548365 (Version 2)
Quarter: 2022Q4

REPORT INFORMATION
  Report Type: Spontaneous
  Country: US (occurrence: US)
  Receive Date: 20221103
  Receipt Date: 20221219
  Transmission Date: 20230112
  Serious: No
  Sender: FDA-Public Use
  Company Number: US-PFIZER INC-PV202200078051

PATIENT
  Age: 58 Year
  Sex: Male

DRUGS (1)
  1. XELJANZ XR [Suspect]
     Active Substance: TOFACITINIB CITRATE
     Indication: Rheumatoid arthritis
     Dosage: UNK

REACTIONS (4)
  - Drug ineffective [Unknown]
  - Nasal congestion [Not Recovered/Not Resolved]
  - Rhinorrhoea [Unknown]
  - Throat irritation [Unknown]
